FAERS Safety Report 12556234 (Version 1)
Quarter: 2016Q3

REPORT INFORMATION
  Report Type: Spontaneous
  Country: US (occurrence: None)
  Receive Date: 20160713
  Receipt Date: 20160713
  Transmission Date: 20161109
  Serious: Yes (Hospitalization)
  Sender: FDA-Public Use
  Company Number: None

PATIENT
  Age: 31 Year
  Sex: Male
  Weight: 90.72 kg

DRUGS (7)
  1. ZOLOFT [Suspect]
     Active Substance: SERTRALINE HYDROCHLORIDE
     Indication: BIPOLAR DISORDER
  2. MARIJUANA [Concomitant]
     Active Substance: CANNABIS SATIVA SUBSP. INDICA TOP
  3. BEER [Concomitant]
     Active Substance: ALCOHOL
  4. ABILIFY [Concomitant]
     Active Substance: ARIPIPRAZOLE
  5. TOPAMAX [Concomitant]
     Active Substance: TOPIRAMATE
  6. ATIVAN [Concomitant]
     Active Substance: LORAZEPAM
  7. POLYSUBSTANSES [Concomitant]

REACTIONS (1)
  - Aggression [None]

NARRATIVE: CASE EVENT DATE: 20130301
